FAERS Safety Report 4874356-X (Version None)
Quarter: 2006Q1

REPORT INFORMATION
  Report Type: 
  Country: None (occurrence: None)
  Receive Date: 20060104
  Receipt Date: 20051222
  Transmission Date: 20060701
  Serious: Yes (Other)
  Sender: FDA-Public Use
  Company Number: 2005172679

PATIENT
  Age: 26 Year
  Sex: Female
  Weight: 56.6996 kg

DRUGS (1)
  1. ZMAX [Suspect]
     Indication: BRONCHITIS
     Dosage: 2 GRAM (2 GRAM, ONCE), ORAL
     Route: 048
     Dates: start: 20051222, end: 20051222

REACTIONS (1)
  - DIARRHOEA HAEMORRHAGIC [None]
